FAERS Safety Report 16735505 (Version 8)
Quarter: 2023Q4

REPORT INFORMATION
  Report Type: Spontaneous
  Country: US (occurrence: US)
  Receive Date: 20190823
  Receipt Date: 20231113
  Transmission Date: 20240110
  Serious: Yes (Death, Other)
  Sender: FDA-Public Use
  Company Number: US-PFIZER INC-2019339756

PATIENT
  Age: 82 Year
  Sex: Male

DRUGS (2)
  1. XELJANZ XR [Suspect]
     Active Substance: TOFACITINIB CITRATE
     Dosage: 11 MG
  2. XELJANZ XR [Suspect]
     Active Substance: TOFACITINIB CITRATE
     Dosage: 11 MG
     Dates: start: 20181223

REACTIONS (5)
  - Death [Fatal]
  - Spondylolisthesis [Unknown]
  - Malignant melanoma [Unknown]
  - Hypoacusis [Unknown]
  - Diarrhoea [Unknown]
